FAERS Safety Report 17585107 (Version 1)
Quarter: 2020Q1

REPORT INFORMATION
  Report Type: Spontaneous
  Country: GB (occurrence: GB)
  Receive Date: 20200326
  Receipt Date: 20200326
  Transmission Date: 20200409
  Serious: Yes (Other)
  Sender: FDA-Public Use
  Company Number: GB-MYLANLABS-2020M1031536

PATIENT
  Age: 62 Year
  Sex: Female
  Weight: 83 kg

DRUGS (9)
  1. NAPROXEN. [Suspect]
     Active Substance: NAPROXEN
     Indication: PRODUCT USED FOR UNKNOWN INDICATION
     Dosage: TAKE ONE UP TO FOUR TIMES A DAY
     Dates: start: 20190806
  2. AMITRIPTYLINE HYDROCHLORIDE. [Concomitant]
     Active Substance: AMITRIPTYLINE HYDROCHLORIDE
     Dosage: 1N
     Dates: start: 20200211
  3. ZOPICLONE [Concomitant]
     Active Substance: ZOPICLONE
     Dosage: AT NIGHT
     Dates: start: 20200115, end: 20200212
  4. SERTRALINE [Concomitant]
     Active Substance: SERTRALINE HYDROCHLORIDE
     Dosage: EACH MORNING
     Dates: start: 20190619
  5. GABAPENTIN. [Concomitant]
     Active Substance: GABAPENTIN
     Dosage: START ONE AT NIGHT, INCREASE IF NEEDED TO 1TDS
     Dates: start: 20190806, end: 20200210
  6. LEVOTHYROXINE. [Concomitant]
     Active Substance: LEVOTHYROXINE
     Dosage: TAKE 100MCG  MONDAY TO FRIDAY 125MCG WEEKENDS
     Dates: start: 20190619
  7. FEMOSTON [Concomitant]
     Active Substance: DYDROGESTERONE\ESTRADIOL
     Dosage: PER OUTPATIENTS PRESCRIPTION
     Dates: start: 20191120
  8. OMEPRAZOLE. [Concomitant]
     Active Substance: OMEPRAZOLE
     Dosage: WHEN TAKING NAPROXEN
     Dates: start: 20190806
  9. TRAMADOL. [Concomitant]
     Active Substance: TRAMADOL
     Dosage: 1-2 TO BE TAKEN FOUR TIMES DAILY
     Dates: start: 20191104

REACTIONS (2)
  - Malaise [Unknown]
  - Burning sensation [Recovered/Resolved]

NARRATIVE: CASE EVENT DATE: 20200224
